FAERS Safety Report 22388349 (Version 3)
Quarter: 2023Q4

REPORT INFORMATION
  Report Type: Report from Study
  Country: US (occurrence: US)
  Receive Date: 20230531
  Receipt Date: 20231031
  Transmission Date: 20240110
  Serious: Yes (Hospitalization, Other)
  Sender: FDA-Public Use
  Company Number: US-ABBVIE-4747759

PATIENT
  Sex: Male
  Weight: 65 kg

DRUGS (16)
  1. VENCLEXTA [Suspect]
     Active Substance: VENETOCLAX
     Indication: Acute myeloid leukaemia
     Dosage: FORM STRENGTH 100 MG?TAKE 1 TABLET BY MOUTH ONCE DAILY
     Route: 048
  2. VENCLEXTA [Suspect]
     Active Substance: VENETOCLAX
     Indication: Acute myeloid leukaemia
     Dosage: TAKE 4 TABLETS (400 MG TOTAL) BY MOUTH DAILY WITH DINNER, DAYS 1-21 AND DAYS TAKEN TO BE DISCUSSE...
     Route: 048
  3. VENCLEXTA [Suspect]
     Active Substance: VENETOCLAX
     Indication: Acute myeloid leukaemia
     Dosage: FORM STRENGTH: 100 MG TABLET?TAKE 4 TABLET(S) BY MOUTH DAILY WITH DINNER. DAYS 1-14 AND DAYS TAKE...
     Route: 048
  4. TOPROL XL [Concomitant]
     Active Substance: METOPROLOL SUCCINATE
     Indication: Product used for unknown indication
     Dosage: 24 HR TABLET?TAKE 1 TABLET (25 MG  TOTAL) BY MOUTH DAILY.
     Route: 048
     Dates: start: 20230519
  5. MEROPENEM [Concomitant]
     Active Substance: MEROPENEM
     Indication: Product used for unknown indication
  6. MIRALAX [Concomitant]
     Active Substance: POLYETHYLENE GLYCOL 3350
     Indication: Product used for unknown indication
     Dosage: POWDER?TAKE 17 G BY MOUTH.?FORM STRENGTH: 17 GRAM
     Route: 048
     Dates: start: 20230505
  7. AUGMENTIN [Concomitant]
     Active Substance: AMOXICILLIN\CLAVULANATE POTASSIUM
     Indication: Product used for unknown indication
     Dosage: 875-125 MG PER TABLET -  2 (TWO) TIMES A DAY FOR 9 DOSES
     Route: 048
     Dates: start: 20230519
  8. PROTONIX [Concomitant]
     Active Substance: PANTOPRAZOLE SODIUM
     Indication: Product used for unknown indication
     Dosage: TAKE 1 TABLET (40 MG TOTAL) BY MOUTH DAILY?FORM STRENGTH: 40 MG
     Route: 048
     Dates: start: 20230425
  9. SENOKOT-S [Concomitant]
     Active Substance: DOCUSATE SODIUM\SENNOSIDES
     Indication: Product used for unknown indication
     Dosage: 8.6-50 MG?TAKE 1 TABLET BY MOUTH 2 (TWO) TIMES A DAY.
     Route: 048
  10. CEFEPIME [Concomitant]
     Active Substance: CEFEPIME HYDROCHLORIDE
     Indication: Product used for unknown indication
  11. FLONASE [Concomitant]
     Active Substance: FLUTICASONE PROPIONATE
     Indication: Product used for unknown indication
     Dosage: 2 SPRAYS INTO EACH NOSTRIL?FORM STRENGTH: 50 MICROGRAM ACTUATION NASAL SPRAY
     Route: 045
     Dates: start: 20230425
  12. ZOVIRAX [Concomitant]
     Active Substance: ACYCLOVIR
     Indication: Product used for unknown indication
     Dosage: FORM STRENGTH: 200 MILLIGRAM?TAKE 2 CAPSULES (400 MG TOTAL) BY MOUTH 2 (TWO) TIMES  A DAY
     Route: 048
     Dates: start: 20230520
  13. DELTASONE [Concomitant]
     Active Substance: PREDNISONE
     Indication: Product used for unknown indication
     Dosage: TAKE 2 TABLETS (40 MG TOTAL) BY MOUTH DAILY FOR 12 DAYS.?FORM STRENGTH: 20 MILLIGRAM
     Route: 048
     Dates: start: 20230520
  14. ZOFRAN [Concomitant]
     Active Substance: ONDANSETRON HYDROCHLORIDE
     Indication: Product used for unknown indication
     Dosage: DISINTEGRATING TABLET?TAKE 1 TABLET (4 MG TOTAL) BY MOUTH?FORM STRENGTH: 4 MG
     Route: 048
     Dates: start: 20230505
  15. VITAMIN D3 [Concomitant]
     Active Substance: CHOLECALCIFEROL
     Indication: Product used for unknown indication
     Dosage: FORM STRENGTH: 2000 UNIT?TAKE 1 CAPSULE BY  MOUTH DAILY
     Route: 048
     Dates: start: 20230330
  16. LIPITOR [Concomitant]
     Active Substance: ATORVASTATIN CALCIUM
     Indication: Product used for unknown indication
     Dosage: TAKE 1 TABLET (20 MG  TOTAL) BY MOUTH NIGHTLY?FORM STRENGTH: 20 MG
     Route: 048
     Dates: start: 20230502

REACTIONS (8)
  - Hospitalisation [Unknown]
  - Syncope [Unknown]
  - Off label use [Unknown]
  - Myocarditis [Unknown]
  - Acute febrile neutrophilic dermatosis [Unknown]
  - Neutrophilic dermatosis [Recovering/Resolving]
  - Thrombocytopenia [Recovering/Resolving]
  - Febrile neutropenia [Recovered/Resolved]
